FAERS Safety Report 6186015-4 (Version None)
Quarter: 2009Q2

REPORT INFORMATION
  Report Type: 
  Country: None (occurrence: None)
  Receive Date: 20090507
  Receipt Date: 20090507
  Transmission Date: 20091009
  Serious: Yes (Hospitalization)
  Sender: FDA-Public Use
  Company Number: None

PATIENT
  Age: 65 Year
  Sex: Male

DRUGS (2)
  1. CAPECITABINE [Suspect]
     Dosage: 1200 MG BID PO
     Route: 048
     Dates: start: 20081229, end: 20081229
  2. EPIRUBICIN [Suspect]
     Dosage: 96 MG ONCE IV
     Route: 042
     Dates: start: 20081229, end: 20081229

REACTIONS (3)
  - FEBRILE NEUTROPENIA [None]
  - LEUKOPENIA [None]
  - NAUSEA [None]
